FAERS Safety Report 6976947-9 (Version None)
Quarter: 2010Q3

REPORT INFORMATION
  Report Type: 
  Country: None (occurrence: None)
  Receive Date: 20100910
  Receipt Date: 20100906
  Transmission Date: 20110219
  Serious: Yes (Death, Other)
  Sender: FDA-Public Use
  Company Number: GR-ROCHE-625762

PATIENT

DRUGS (8)
  1. TRASTUZUMAB [Suspect]
     Dosage: LOADING DOSE
     Route: 042
  2. TRASTUZUMAB [Suspect]
     Route: 042
  3. CAPECITABINE [Suspect]
     Dosage: ON DAYS 1-14, EVERY 3 WEEKS
     Route: 048
  4. DOCETAXEL [Suspect]
     Dosage: ON DAY 1, WITH ROUTINE STEROID PREMEDICATION AND POST MEDICATION; FORM: INFUSION
     Route: 042
  5. CYCLOPHOSPHAMIDE [Concomitant]
  6. METHOTREXATE [Concomitant]
  7. FLUOROURACIL [Concomitant]
  8. EPIRUBICIN [Concomitant]

REACTIONS (7)
  - BREAST CANCER METASTATIC [None]
  - DIARRHOEA [None]
  - NAUSEA [None]
  - NEUTROPENIA [None]
  - PALMAR-PLANTAR ERYTHRODYSAESTHESIA SYNDROME [None]
  - STOMATITIS [None]
  - VOMITING [None]
